FAERS Safety Report 10007360 (Version 1)
Quarter: 2014Q1

REPORT INFORMATION
  Report Type: Spontaneous
  Country: US (occurrence: None)
  Receive Date: 20140312
  Receipt Date: 20140312
  Transmission Date: 20141002
  Serious: Yes (Hospitalization)
  Sender: FDA-Public Use
  Company Number: None

PATIENT
  Age: 57 Year
  Sex: Male
  Weight: 71.4 kg

DRUGS (2)
  1. CARBOPLATIN [Suspect]
     Dates: end: 20140310
  2. TAXOL [Suspect]
     Dosage: 282 MG.
     Dates: start: 20140310

REACTIONS (1)
  - Pneumonia [None]
